FAERS Safety Report 21637932 (Version 1)
Quarter: 2022Q4

REPORT INFORMATION
  Report Type: Report from Study
  Country: US (occurrence: US)
  Receive Date: 20221124
  Receipt Date: 20221124
  Transmission Date: 20230113
  Serious: No
  Sender: FDA-Public Use
  Company Number: US-ABBVIE-4159119

PATIENT
  Sex: Male

DRUGS (3)
  1. HUMIRA [Suspect]
     Active Substance: ADALIMUMAB
     Indication: Crohn^s disease
     Route: 058
  2. MODERNA [Concomitant]
     Indication: COVID-19 immunisation
     Dosage: 1 IN ONCE?FIRST DOSE
     Route: 030
     Dates: start: 20210404, end: 20210404
  3. MODERNA [Concomitant]
     Indication: COVID-19 immunisation
     Dosage: 1 IN ONCE?SECOND DOSE
     Route: 030
     Dates: start: 20220505, end: 20220505

REACTIONS (4)
  - Large intestine infection [Recovered/Resolved]
  - Pain in extremity [Unknown]
  - Abdominal pain [Unknown]
  - Back pain [Unknown]
